FAERS Safety Report 9384397 (Version 1)
Quarter: 2013Q3

REPORT INFORMATION
  Report Type: Report from Study
  Country: AU (occurrence: AU)
  Receive Date: 20130705
  Receipt Date: 20130705
  Transmission Date: 20140515
  Serious: Yes (Life-Threatening, Hospitalization, Other)
  Sender: FDA-Public Use
  Company Number: PHHY2012AU029196

PATIENT
  Age: 47 Year
  Sex: Male

DRUGS (8)
  1. CLOZARIL [Suspect]
     Dosage: 650 MG
     Route: 048
     Dates: start: 20061031
  2. ATORVASTATIN [Concomitant]
     Dosage: 10 MG, UNK
     Route: 048
  3. RAMIPRIL [Concomitant]
     Dosage: 5 MG, DAILY
     Route: 048
  4. ASPIRIN [Concomitant]
     Dosage: 100 MG, DAILY
     Route: 048
  5. OLANZAPINE [Concomitant]
     Dosage: 10 MG, DAILY
     Route: 048
  6. BISOPROLOL [Concomitant]
     Dosage: 10 MG, DAILY
     Route: 048
  7. BICON [Concomitant]
     Route: 048
  8. LIPTOR [Concomitant]
     Dosage: 10 MG, DAILY
     Route: 048

REACTIONS (14)
  - Hyponatraemia [Recovered/Resolved]
  - Grand mal convulsion [Recovered/Resolved]
  - Convulsion [Recovered/Resolved]
  - Laceration [Unknown]
  - Alcohol abuse [Unknown]
  - Drug abuse [Unknown]
  - Antisocial personality disorder [Unknown]
  - Haematocrit decreased [Unknown]
  - Neutrophil count increased [Unknown]
  - Red blood cell count decreased [Unknown]
  - Aspartate aminotransferase increased [Unknown]
  - Haemoglobin decreased [Unknown]
  - Blood lactate dehydrogenase increased [Unknown]
  - White blood cell count increased [Unknown]
